FAERS Safety Report 17263653 (Version 1)
Quarter: 2020Q1

REPORT INFORMATION
  Report Type: Spontaneous
  Country: US (occurrence: US)
  Receive Date: 20200113
  Receipt Date: 20200113
  Transmission Date: 20200409
  Serious: Yes (Life-Threatening, Hospitalization, Other)
  Sender: FDA-Public Use
  Company Number: None

PATIENT
  Age: 24 Year
  Sex: Female
  Weight: 72 kg

DRUGS (8)
  1. BACTRIM [Concomitant]
     Active Substance: SULFAMETHOXAZOLE\TRIMETHOPRIM
  2. HUMIRA [Suspect]
     Active Substance: ADALIMUMAB
     Indication: SARCOIDOSIS
     Dosage: ?          QUANTITY:1 INJECTION(S);OTHER FREQUENCY:2 WEEKS;?
     Route: 058
     Dates: start: 20190128
  3. MCG-35 RANSDERMAL PATCH [Concomitant]
  4. XULANE [Concomitant]
     Active Substance: ETHINYL ESTRADIOL\NORELGESTROMIN
  5. NITROFURANTOIN. [Concomitant]
     Active Substance: NITROFURANTOIN
  6. PREDNISONE. [Concomitant]
     Active Substance: PREDNISONE
  7. HUMIRA [Suspect]
     Active Substance: ADALIMUMAB
     Indication: IRIDOCYCLITIS
     Dosage: ?          QUANTITY:1 INJECTION(S);OTHER FREQUENCY:2 WEEKS;?
     Route: 058
     Dates: start: 20190128
  8. MCG-24 TRANSDERMAL PATCH [Concomitant]

REACTIONS (6)
  - Renal cyst [None]
  - Vision blurred [None]
  - Renal injury [None]
  - Kidney infection [None]
  - Pain [None]
  - Abdominal pain upper [None]

NARRATIVE: CASE EVENT DATE: 20191003
